FAERS Safety Report 5740646-1 (Version None)
Quarter: 2008Q2

REPORT INFORMATION
  Report Type: 
  Country: None (occurrence: None)
  Receive Date: 20080516
  Receipt Date: 20080506
  Transmission Date: 20081010
  Serious: Yes (Death, Hospitalization)
  Sender: FDA-Public Use
  Company Number: B0520284A

PATIENT
  Age: 60 Year
  Sex: Male

DRUGS (8)
  1. ZANTAC [Suspect]
     Indication: DRUG USE FOR UNKNOWN INDICATION
     Route: 048
  2. COAPROVEL [Suspect]
     Indication: DRUG USE FOR UNKNOWN INDICATION
     Route: 048
  3. MOPRAL [Suspect]
     Indication: DRUG USE FOR UNKNOWN INDICATION
     Route: 048
  4. SERETIDE [Concomitant]
     Route: 055
  5. ZOPICLONE [Concomitant]
     Route: 065
  6. LORAZEPAM [Concomitant]
     Route: 065
  7. NON STEROID ANTI INFLAMMATORY DRUG [Concomitant]
     Route: 065
  8. ACETAMINOPHEN [Concomitant]
     Route: 065

REACTIONS (17)
  - ABDOMINAL PAIN [None]
  - ACUTE RESPIRATORY DISTRESS SYNDROME [None]
  - ALTERED STATE OF CONSCIOUSNESS [None]
  - DYSPNOEA [None]
  - GENERAL PHYSICAL HEALTH DETERIORATION [None]
  - HAEMODYNAMIC INSTABILITY [None]
  - HEPATOCELLULAR INJURY [None]
  - HEPATOMEGALY [None]
  - HEPATORENAL SYNDROME [None]
  - HYPERKALAEMIA [None]
  - MELAENA [None]
  - MULTI-ORGAN FAILURE [None]
  - PORTAL VEIN THROMBOSIS [None]
  - RENAL FAILURE ACUTE [None]
  - RESPIRATORY DISORDER [None]
  - SHOCK [None]
  - TACHYPNOEA [None]
